FAERS Safety Report 6062401-8 (Version None)
Quarter: 2009Q1

REPORT INFORMATION
  Report Type: 
  Country: None (occurrence: None)
  Receive Date: 20090202
  Receipt Date: 20090202
  Transmission Date: 20090719
  Serious: Yes (Hospitalization)
  Sender: FDA-Public Use
  Company Number: None

PATIENT
  Sex: Male
  Weight: 78 kg

DRUGS (9)
  1. CYCLOPHOSPHAMIDE [Suspect]
     Dosage: 1900 MG
  2. CYTARABINE [Suspect]
     Dosage: 40 MG
  3. DEXAMETHASONE TAB [Suspect]
     Dosage: 90 MG
  4. DOXORUBICIN HYDROCHLORIDE [Suspect]
     Dosage: 92 MG
  5. G-CSF (FILGRASTIM, AMGEN) [Suspect]
     Dosage: 600 MCG
  6. METHOTREXATE [Suspect]
     Dosage: 2805 MG
  7. RITUXIMAB (MOAB C2B8 ANTI CD20, CHIMERIC) [Suspect]
     Dosage: 700 MG
  8. VINCRISTINE SULFATE [Suspect]
     Dosage: 2 MG
  9. ALLOPURINOL [Suspect]
     Dosage: 1200 MG

REACTIONS (13)
  - ASCITES [None]
  - CANDIDIASIS [None]
  - CLOSTRIDIAL INFECTION [None]
  - DYSPHAGIA [None]
  - FEBRILE NEUTROPENIA [None]
  - LYMPHADENOPATHY [None]
  - MUCOSAL INFLAMMATION [None]
  - OROPHARYNGEAL PAIN [None]
  - PHARYNGEAL OEDEMA [None]
  - PLEURAL EFFUSION [None]
  - PLEURITIC PAIN [None]
  - RENAL DISORDER [None]
  - RENAL FAILURE ACUTE [None]
